FAERS Safety Report 4874369-8 (Version None)
Quarter: 2006Q1

REPORT INFORMATION
  Report Type: 
  Country: None (occurrence: None)
  Receive Date: 20060104
  Receipt Date: 20051117
  Transmission Date: 20060701
  Serious: Yes (Hospitalization, Other)
  Sender: FDA-Public Use
  Company Number: 2005173136

PATIENT
  Age: 87 Year
  Sex: Male

DRUGS (4)
  1. BEXTRA [Suspect]
     Indication: ARTHRALGIA
     Dates: start: 20040101, end: 20040107
  2. AVELOX [Concomitant]
  3. DILTIAZEM [Concomitant]
  4. DYAZIDE [Concomitant]

REACTIONS (10)
  - ANXIETY [None]
  - ASTHENIA [None]
  - DEPRESSED LEVEL OF CONSCIOUSNESS [None]
  - DEPRESSION [None]
  - DIABETES MELLITUS [None]
  - HAEMATURIA [None]
  - LEUKOCYTOCLASTIC VASCULITIS [None]
  - NEPHRITIS INTERSTITIAL [None]
  - TRANSAMINASES INCREASED [None]
  - VENOUS STASIS [None]
